FAERS Safety Report 9915062 (Version 2)
Quarter: 2014Q4

REPORT INFORMATION
  Report Type: Report from Study
  Country: NL (occurrence: NL)
  Receive Date: 20140220
  Receipt Date: 20141016
  Transmission Date: 20150529
  Serious: Yes (Hospitalization, Other)
  Sender: FDA-Public Use
  Company Number: NL-ASTRAZENECA-2014SE11154

PATIENT
  Age: 81 Year
  Sex: Female

DRUGS (15)
  1. NORVASC [Concomitant]
     Active Substance: AMLODIPINE BESYLATE
  2. ASCAL (ASPIRIN CALCIUM) [Suspect]
     Active Substance: ASPIRIN CALCIUM
     Indication: ACUTE CORONARY SYNDROME
     Route: 048
     Dates: start: 20130909
  3. COZAAR [Concomitant]
     Active Substance: LOSARTAN POTASSIUM
  4. ATORVASTATINE [Concomitant]
     Active Substance: ATORVASTATIN
  5. EMCOR [Concomitant]
     Active Substance: BISOPROLOL
  6. CACIT [Concomitant]
     Active Substance: CALCIUM\VITAMIN D
  7. IMPORTAL [Concomitant]
     Active Substance: LACTITOL
  8. TICAGRELOR [Suspect]
     Active Substance: TICAGRELOR
     Indication: ACUTE CORONARY SYNDROME
     Route: 048
     Dates: start: 20130909
  9. VALSARTAN. [Concomitant]
     Active Substance: VALSARTAN
  10. PARACETAMOL [Concomitant]
     Active Substance: ACETAMINOPHEN
  11. MOVICOLON [Concomitant]
     Active Substance: POLYETHYLENE GLYCOL 3350\POTASSIUM CHLORIDE\SODIUM BICARBONATE\SODIUM CHLORIDE
  12. PANTOZOL [Concomitant]
     Active Substance: PANTOPRAZOLE SODIUM
  13. ZOCOR [Concomitant]
     Active Substance: SIMVASTATIN
  14. ASCAL (ASPIRIN CALCIUM) [Suspect]
     Active Substance: ASPIRIN CALCIUM
     Indication: ACUTE CORONARY SYNDROME
     Dosage: MAINTANENCE THERAPY - 100 MG DAILY
     Route: 048
  15. FENTANYL. [Concomitant]
     Active Substance: FENTANYL

REACTIONS (2)
  - Acute myocardial infarction [Recovered/Resolved]
  - Angina unstable [Recovered/Resolved]

NARRATIVE: CASE EVENT DATE: 20130916
